FAERS Safety Report 12638528 (Version 1)
Quarter: 2016Q3

REPORT INFORMATION
  Report Type: Spontaneous
  Country: IT (occurrence: IT)
  Receive Date: 20160809
  Receipt Date: 20160809
  Transmission Date: 20161109
  Serious: Yes (Other)
  Sender: FDA-Public Use
  Company Number: IT-BRISTOL-MYERS SQUIBB COMPANY-BMS-2016-063057

PATIENT
  Age: 48 Year
  Sex: Female

DRUGS (1)
  1. COUMADIN [Suspect]
     Active Substance: WARFARIN SODIUM
     Indication: FACTOR V LEIDEN MUTATION
     Route: 065

REACTIONS (3)
  - Mouth haemorrhage [Unknown]
  - Overdose [Unknown]
  - Dental operation [Unknown]

NARRATIVE: CASE EVENT DATE: 20160529
